FAERS Safety Report 24356358 (Version 1)
Quarter: 2024Q3

REPORT INFORMATION
  Report Type: Spontaneous
  Country: US (occurrence: US)
  Receive Date: 20240924
  Receipt Date: 20240924
  Transmission Date: 20241016
  Serious: Yes (Hospitalization)
  Sender: SANOFI AVENTIS
  Company Number: US-SA-2024SA274284

PATIENT
  Age: 34 Year
  Sex: Male

DRUGS (2)
  1. ALPROLIX [Suspect]
     Active Substance: EFTRENONACOG ALFA
     Indication: Factor IX deficiency
     Dosage: 9200 U  ((8280-10120) SLOW IV PUSH EVERY 7 DAYS. FOR MINOR/MODERATE BLEEDS: INFUSE 3500 UNITS (3150-
     Route: 042
     Dates: start: 202302
  2. ALPROLIX [Suspect]
     Active Substance: EFTRENONACOG ALFA
     Indication: Factor IX deficiency
     Dosage: 9200 U  ((8280-10120) SLOW IV PUSH EVERY 7 DAYS. FOR MINOR/MODERATE BLEEDS: INFUSE 3500 UNITS (3150-
     Route: 042
     Dates: start: 202302

REACTIONS (3)
  - Lumbar puncture [Unknown]
  - Traumatic haemorrhage [Recovered/Resolved]
  - Fall [Unknown]

NARRATIVE: CASE EVENT DATE: 20240901
